FAERS Safety Report 9482568 (Version 1)
Quarter: 2013Q3

REPORT INFORMATION
  Report Type: Spontaneous
  Country: FR (occurrence: FR)
  Receive Date: 20130828
  Receipt Date: 20130828
  Transmission Date: 20140515
  Serious: Yes (Hospitalization)
  Sender: FDA-Public Use
  Company Number: FR-SANOFI-AVENTIS-2013SA084830

PATIENT
  Age: 83 Year
  Sex: Male

DRUGS (11)
  1. RAMIPRIL [Suspect]
     Indication: HYPERTENSION
     Route: 048
     Dates: end: 20130128
  2. MYTELASE [Suspect]
     Indication: PRODUCT USED FOR UNKNOWN INDICATION
     Route: 048
  3. MYTELASE [Suspect]
     Indication: PRODUCT USED FOR UNKNOWN INDICATION
     Route: 048
     Dates: start: 20130125
  4. ESIDREX [Suspect]
     Indication: HYPERTENSION
     Route: 048
     Dates: end: 20130128
  5. TEGELINE [Suspect]
     Indication: PRODUCT USED FOR UNKNOWN INDICATION
     Dosage: INTRAVENOUS BY PERFUSION
     Route: 042
     Dates: start: 20130126, end: 20130128
  6. LOXEN [Concomitant]
  7. KARDEGIC [Concomitant]
  8. PREDNISONE [Concomitant]
  9. EUPRESSYL [Concomitant]
  10. IMUREL [Concomitant]
  11. FENOFIBRATE [Concomitant]

REACTIONS (4)
  - Renal failure acute [Recovered/Resolved]
  - Creatinine renal clearance abnormal [Recovered/Resolved]
  - Anuria [Recovered/Resolved]
  - Diarrhoea [Recovered/Resolved]
